FAERS Safety Report 18597359 (Version 1)
Quarter: 2020Q4

REPORT INFORMATION
  Report Type: Spontaneous
  Country: US (occurrence: US)
  Receive Date: 20201209
  Receipt Date: 20201209
  Transmission Date: 20210114
  Serious: No
  Sender: FDA-Public Use
  Company Number: US-IBSA PHARMA INC.-2019IBS000167

PATIENT
  Sex: Female

DRUGS (2)
  1. TIROSINT [Suspect]
     Active Substance: LEVOTHYROXINE SODIUM
     Indication: THYROID CANCER
     Dosage: 88MCG DAILY
     Route: 048
     Dates: start: 20191031
  2. UNSPECIFIED MEDICATION [Concomitant]
     Active Substance: UNSPECIFIED INGREDIENT
     Indication: PRODUCT USED FOR UNKNOWN INDICATION

REACTIONS (5)
  - Energy increased [Unknown]
  - Drug interaction [Unknown]
  - Psychomotor hyperactivity [Unknown]
  - Pruritus [Unknown]
  - Increased appetite [Unknown]

NARRATIVE: CASE EVENT DATE: 2019
